FAERS Safety Report 5798041-5 (Version None)
Quarter: 2008Q3

REPORT INFORMATION
  Report Type: 
  Country: None (occurrence: None)
  Receive Date: 20080701
  Receipt Date: 20080701
  Transmission Date: 20090109
  Serious: Yes (Other)
  Sender: FDA-Public Use
  Company Number: None

PATIENT
  Sex: Female

DRUGS (3)
  1. GABAPENTIN [Suspect]
     Indication: ANXIETY DISORDER
     Dosage: GABAPENTIN 300MG 2 PO BID ORAL
     Route: 048
  2. GABAPENTIN [Suspect]
     Indication: FIBROMYALGIA
     Dosage: GABAPENTIN 300MG 2 PO BID ORAL
     Route: 048
  3. GABAPENTIN [Suspect]
     Indication: OSTEOARTHRITIS
     Dosage: GABAPENTIN 300MG 2 PO BID ORAL
     Route: 048

REACTIONS (3)
  - MUSCLE SPASMS [None]
  - NAUSEA [None]
  - PHARMACEUTICAL PRODUCT COMPLAINT [None]
